FAERS Safety Report 9538887 (Version 1)
Quarter: 2013Q3

REPORT INFORMATION
  Report Type: Report from Study
  Country: US (occurrence: US)
  Receive Date: 20130920
  Receipt Date: 20130920
  Transmission Date: 20140515
  Serious: Yes (Other)
  Sender: FDA-Public Use
  Company Number: US-JNJFOC-20130911196

PATIENT
  Sex: 0

DRUGS (2)
  1. DOXORUBICIN HYDROCHLORIDE [Suspect]
     Indication: NEOPLASM
     Route: 042
  2. VELCADE [Suspect]
     Indication: NEOPLASM
     Dosage: 0.9-1.5 MG/M2, ON DAYS 1, 4, 8, AND 11,WITH MANNITOL, NORMAL SALINE, 1 MG/ML, IV PUSH OVER 3-5SEC
     Route: 040

REACTIONS (1)
  - Myalgia [Unknown]
